FAERS Safety Report 7113222-6 (Version None)
Quarter: 2010Q4

REPORT INFORMATION
  Report Type: 
  Country: None (occurrence: None)
  Receive Date: 20101119
  Receipt Date: 20100119
  Transmission Date: 20110411
  Serious: No
  Sender: FDA-Public Use
  Company Number: A0837419A

PATIENT
  Age: 35 Year
  Sex: Male

DRUGS (6)
  1. BUPROPION HYDROCHLORIDE [Suspect]
     Indication: DEPRESSION
     Dosage: 100MG THREE TIMES PER DAY
     Route: 048
     Dates: start: 20091201, end: 20091201
  2. WELLBUTRIN [Suspect]
     Indication: DEPRESSION
     Dosage: 150MG TWICE PER DAY
     Route: 048
     Dates: start: 20091230
  3. BUSPAR [Suspect]
     Route: 065
  4. FISH OIL [Concomitant]
  5. VALIUM [Concomitant]
  6. XANAX [Concomitant]

REACTIONS (9)
  - ADVERSE DRUG REACTION [None]
  - ANORGASMIA [None]
  - DRY EYE [None]
  - DRY MOUTH [None]
  - DYSARTHRIA [None]
  - LIBIDO DECREASED [None]
  - PARAESTHESIA [None]
  - SEXUAL DYSFUNCTION [None]
  - VISION BLURRED [None]
